FAERS Safety Report 23236767 (Version 1)
Quarter: 2023Q4

REPORT INFORMATION
  Report Type: Spontaneous
  Country: VE (occurrence: VE)
  Receive Date: 20231128
  Receipt Date: 20231128
  Transmission Date: 20240110
  Serious: Yes (Death, Hospitalization, Other)
  Sender: FDA-Public Use
  Company Number: VE-TAKEDA-2023TUS111116

PATIENT
  Sex: Male

DRUGS (1)
  1. ICLUSIG [Suspect]
     Active Substance: PONATINIB
     Indication: Chronic myeloid leukaemia
     Dosage: 45 MILLIGRAM
     Route: 065

REACTIONS (7)
  - Respiratory arrest [Fatal]
  - General physical health deterioration [Fatal]
  - Platelet count abnormal [Unknown]
  - Anaemia [Unknown]
  - Internal haemorrhage [Unknown]
  - Mouth haemorrhage [Unknown]
  - Contusion [Unknown]
